FAERS Safety Report 18799246 (Version 2)
Quarter: 2021Q1

REPORT INFORMATION
  Report Type: Spontaneous
  Country: US (occurrence: US)
  Receive Date: 20210128
  Receipt Date: 20210209
  Transmission Date: 20210419
  Serious: Yes (Other)
  Sender: FDA-Public Use
  Company Number: US-BAYER-2021-030085

PATIENT
  Age: 73 Year
  Sex: Female

DRUGS (3)
  1. KOGENATE FS [Suspect]
     Active Substance: ANTIHEMOPHILIC FACTOR, HUMAN RECOMBINANT
     Dosage: 3000 U
     Route: 042
  2. KOGENATE FS [Suspect]
     Active Substance: ANTIHEMOPHILIC FACTOR, HUMAN RECOMBINANT
     Dosage: WILL BE INFUSING FOR THE NEXT FEW DAYS OR UNTIL THE BLEEDING STOPS
  3. KOGENATE FS [Suspect]
     Active Substance: ANTIHEMOPHILIC FACTOR, HUMAN RECOMBINANT
     Dosage: INFUSED BEFORE COLONSCOPY AND HAD TO BIOPSY

REACTIONS (2)
  - Intestinal polyp [None]
  - Post procedural haemorrhage [None]

NARRATIVE: CASE EVENT DATE: 20210118
